FAERS Safety Report 6707355-3 (Version None)
Quarter: 2010Q2

REPORT INFORMATION
  Report Type: 
  Country: None (occurrence: None)
  Receive Date: 20100503
  Receipt Date: 20090507
  Transmission Date: 20101027
  Serious: No
  Sender: FDA-Public Use
  Company Number: US-ASTRAZENECA-2009UW11703

PATIENT
  Age: 76 Year
  Sex: Female
  Weight: 90.3 kg

DRUGS (4)
  1. NEXIUM [Suspect]
     Indication: GASTROOESOPHAGEAL REFLUX DISEASE
     Route: 048
     Dates: start: 20060101
  2. DIOVAN [Concomitant]
  3. METOPROLOL [Concomitant]
  4. GLYBURIDE [Concomitant]

REACTIONS (1)
  - REBOUND EFFECT [None]
